FAERS Safety Report 18392018 (Version 1)
Quarter: 2020Q4

REPORT INFORMATION
  Report Type: Spontaneous
  Country: US (occurrence: US)
  Receive Date: 20201016
  Receipt Date: 20201016
  Transmission Date: 20210114
  Serious: No
  Sender: FDA-Public Use
  Company Number: None

PATIENT
  Age: 38 Year
  Sex: Male
  Weight: 71.5 kg

DRUGS (5)
  1. LOPERAMIDE 2MG PO Q6H [Concomitant]
     Dates: start: 20201014
  2. ENOXAPARIN 40MG SQ DAILY [Concomitant]
     Dates: start: 20201013
  3. ONDANSETRON 4MG IV Q6H PRN [Concomitant]
  4. CEFTRIAXONE 1G IV DAILY [Concomitant]
     Dates: start: 20201013
  5. REMDESIVIR. [Suspect]
     Active Substance: REMDESIVIR
     Indication: COVID-19
     Route: 042
     Dates: start: 20201013, end: 20201015

REACTIONS (5)
  - Palpitations [None]
  - Cough [None]
  - Nausea [None]
  - Feeling abnormal [None]
  - Dyspnoea [None]

NARRATIVE: CASE EVENT DATE: 20201015
